FAERS Safety Report 21448144 (Version 5)
Quarter: 2023Q1

REPORT INFORMATION
  Report Type: Spontaneous
  Country: JP (occurrence: JP)
  Receive Date: 20221012
  Receipt Date: 20230309
  Transmission Date: 20230418
  Serious: Yes (Hospitalization, Other)
  Sender: FDA-Public Use
  Company Number: JP-AMGEN-JPNSP2022174031

PATIENT
  Age: 78 Year
  Sex: Female
  Weight: 38 kg

DRUGS (3)
  1. EVENITY [Suspect]
     Active Substance: ROMOSOZUMAB-AQQG
     Indication: Osteoporosis
     Dosage: 210 MILLIGRAM, QMO
     Route: 058
     Dates: start: 20201009, end: 20210930
  2. ALENDRONATE [Suspect]
     Active Substance: ALENDRONATE SODIUM
     Indication: Osteoporosis
     Dosage: UNK
     Route: 065
     Dates: start: 2021, end: 20221002
  3. ELDECALCITOL [Concomitant]
     Active Substance: ELDECALCITOL
     Indication: Hypocalcaemia
     Dosage: 0.5 MICROGRAM, QD
     Dates: start: 20201009

REACTIONS (3)
  - Atypical femur fracture [Recovering/Resolving]
  - Fall [Recovering/Resolving]
  - Pain in extremity [Recovering/Resolving]

NARRATIVE: CASE EVENT DATE: 20220920
